FAERS Safety Report 9704237 (Version 1)
Quarter: 2013Q4

REPORT INFORMATION
  Report Type: Report from Study
  Country: KR (occurrence: KR)
  Receive Date: 20131122
  Receipt Date: 20131122
  Transmission Date: 20140711
  Serious: Yes (Other)
  Sender: FDA-Public Use
  Company Number: KR-ROCHE-1303636

PATIENT
  Sex: 0

DRUGS (2)
  1. BEVACIZUMAB [Suspect]
     Indication: RETINAL HAEMORRHAGE
     Dosage: 1.25 MG/0.05 ML
     Route: 050
  2. RANIBIZUMAB [Suspect]
     Indication: RETINAL HAEMORRHAGE
     Dosage: 0.5 MG/0.05 ML
     Route: 050

REACTIONS (5)
  - Vitreous haemorrhage [Unknown]
  - Retinal haemorrhage [Unknown]
  - Retinal degeneration [Unknown]
  - Visual acuity reduced [Unknown]
  - Off label use [Unknown]
